FAERS Safety Report 5003536-8 (Version None)
Quarter: 2006Q2

REPORT INFORMATION
  Report Type: 
  Country: None (occurrence: None)
  Receive Date: 20060512
  Receipt Date: 20060427
  Transmission Date: 20061013
  Serious: Yes (Hospitalization)
  Sender: FDA-Public Use
  Company Number: COT_0410_2006

PATIENT
  Age: 67 Year
  Sex: Female
  Weight: 61.2356 kg

DRUGS (23)
  1. VENTAVIS [Suspect]
     Indication: PULMONARY HYPERTENSION
     Dosage: 5 MCG 6XD IH
     Route: 055
     Dates: start: 20060103
  2. SILDENAFIL CITRATE [Suspect]
     Dosage: 20 MG Q8HR PO
     Route: 048
  3. DEMADEX [Suspect]
     Dosage: 40 MG BID PO
     Route: 048
     Dates: end: 20060322
  4. ALDACTONE [Suspect]
     Dosage: 100 MG BID PO
     Route: 048
     Dates: end: 20060322
  5. HUMULIN H [Concomitant]
  6. CENTRUM SILVER [Concomitant]
  7. NEURONTIN [Concomitant]
  8. FOLIC ACID [Concomitant]
  9. LANOXIN [Concomitant]
  10. XANAX [Concomitant]
  11. OXYGEN [Concomitant]
  12. REGLAN [Concomitant]
  13. LORATADINE [Concomitant]
  14. LACTULOSE [Concomitant]
  15. VICODIN [Concomitant]
  16. HUMULIN 70/30 [Concomitant]
  17. ZOLOFT [Concomitant]
  18. GLYCOLAX [Concomitant]
  19. SYNTHROID [Concomitant]
  20. PRILOSEC [Concomitant]
  21. MAGNESIUM OXIDE [Concomitant]
  22. VITAMIN B6 [Concomitant]
  23. COUMADIN [Concomitant]

REACTIONS (8)
  - DYSPNOEA [None]
  - FATIGUE [None]
  - HEAD INJURY [None]
  - HEADACHE [None]
  - HYPERCALCAEMIA [None]
  - HYPOTENSION [None]
  - SOFT TISSUE INJURY [None]
  - SYNCOPE [None]
